FAERS Safety Report 21146551 (Version 2)
Quarter: 2022Q3

REPORT INFORMATION
  Report Type: Spontaneous
  Country: JP (occurrence: JP)
  Receive Date: 20220729
  Receipt Date: 20220829
  Transmission Date: 20221027
  Serious: Yes (Other)
  Sender: FDA-Public Use
  Company Number: JP-CHUGAI-2022018694

PATIENT
  Age: 6 Decade
  Sex: Female

DRUGS (2)
  1. ROZLYTREK [Suspect]
     Active Substance: ENTRECTINIB
     Indication: Non-small cell lung cancer
     Dosage: 600 MILLIGRAM, QD
     Route: 048
     Dates: start: 20220510
  2. ROZLYTREK [Suspect]
     Active Substance: ENTRECTINIB
     Route: 048
     Dates: start: 20220531, end: 20220620

REACTIONS (7)
  - Pulmonary hypertension [Recovered/Resolved]
  - Renal disorder [Recovered/Resolved]
  - Pericardial effusion [Recovering/Resolving]
  - Blood creatinine increased [Recovering/Resolving]
  - Ataxia [Unknown]
  - Pleural effusion [Recovered/Resolved]
  - Hypoaesthesia [Recovered/Resolved]

NARRATIVE: CASE EVENT DATE: 20220520
